FAERS Safety Report 5803289-7 (Version None)
Quarter: 2008Q3

REPORT INFORMATION
  Report Type: 
  Country: None (occurrence: None)
  Receive Date: 20080708
  Receipt Date: 20080707
  Transmission Date: 20090109
  Serious: Yes (Life-Threatening, Hospitalization)
  Sender: FDA-Public Use
  Company Number: A0736313A

PATIENT
  Age: 57 Year
  Sex: Male

DRUGS (6)
  1. CARVEDILOL [Suspect]
     Indication: LEFT VENTRICULAR DYSFUNCTION
     Dosage: 3.125MG TWICE PER DAY
     Route: 048
  2. ANTIPLATELET MEDICATION [Suspect]
     Indication: PERCUTANEOUS CORONARY INTERVENTION
     Route: 042
     Dates: start: 20080530, end: 20080530
  3. CLOPIDOGREL [Suspect]
     Indication: PERCUTANEOUS CORONARY INTERVENTION
     Dosage: 4CAP TWICE PER DAY
     Route: 048
     Dates: start: 20080530, end: 20080530
  4. PERINDOPRIL ERBUMINE [Suspect]
     Indication: LEFT VENTRICULAR DYSFUNCTION
     Dosage: 2MG PER DAY
     Dates: start: 20080529
  5. HEPARIN [Concomitant]
  6. CLOPIDOGREL [Concomitant]
     Dates: start: 20080526

REACTIONS (6)
  - CARDIAC TAMPONADE [None]
  - CHEST PAIN [None]
  - HYPOTENSION [None]
  - RESTLESSNESS [None]
  - SYNCOPE VASOVAGAL [None]
  - VOMITING [None]
